FAERS Safety Report 7909878-8 (Version None)
Quarter: 2011Q4

REPORT INFORMATION
  Report Type: 
  Country: None (occurrence: None)
  Receive Date: 20111111
  Receipt Date: 20111110
  Transmission Date: 20120403
  Serious: Yes (Other)
  Sender: FDA-Public Use
  Company Number: IT-BAYER-2011-109234

PATIENT
  Age: 57 Year
  Sex: Male

DRUGS (1)
  1. ACETYLSALICYLIC ACID SRT [Suspect]
     Dosage: 500 MG, PRN
     Route: 048
     Dates: start: 20111011, end: 20111011

REACTIONS (2)
  - ANGIOEDEMA [None]
  - URTICARIA [None]
